FAERS Safety Report 6234055-9 (Version None)
Quarter: 2009Q2

REPORT INFORMATION
  Report Type: 
  Country: None (occurrence: None)
  Receive Date: 20090618
  Receipt Date: 20090611
  Transmission Date: 20091009
  Serious: Yes (Other)
  Sender: FDA-Public Use
  Company Number: PHEH2009US01790

PATIENT
  Sex: Female
  Weight: 76.19 kg

DRUGS (6)
  1. RECLAST [Suspect]
     Indication: OSTEOPOROSIS
     Dosage: 5 MG ONCE YEARLY
     Route: 042
     Dates: start: 20081001, end: 20081001
  2. ENBREL [Concomitant]
     Dosage: 25 MG TWICE WEEKLY
     Route: 058
  3. CELEBREX [Concomitant]
     Dosage: 200 MG, QD
  4. SYNTHROID [Concomitant]
     Dosage: .075 MG, QD
  5. ZOLOFT [Concomitant]
     Dosage: 100 MG, QD
  6. NEXIUM [Concomitant]
     Dosage: 40 MG, QD

REACTIONS (3)
  - HEADACHE [None]
  - OSTEONECROSIS [None]
  - PAIN IN JAW [None]
